FAERS Safety Report 15963863 (Version 2)
Quarter: 2019Q1

REPORT INFORMATION
  Report Type: Report from Study
  Country: US (occurrence: HU)
  Receive Date: 20190214
  Receipt Date: 20190222
  Transmission Date: 20190417
  Serious: Yes (Other)
  Sender: FDA-Public Use
  Company Number: US-SUNOVION-2019SUN000541

PATIENT

DRUGS (3)
  1. INDACATEROL AND GLYCOPYRROLATE [Suspect]
     Active Substance: GLYCOPYRROLATE\INDACATEROL MALEATE
     Indication: CHRONIC OBSTRUCTIVE PULMONARY DISEASE
     Dosage: UNK
     Route: 065
     Dates: start: 2019
  2. AMLODIPINE [Suspect]
     Active Substance: AMLODIPINE BESYLATE
     Indication: HYPERTENSION
     Dosage: 5 MG, QD (IN THE EVENING)
     Route: 065
     Dates: start: 2015
  3. VENTOLIN [Concomitant]
     Active Substance: ALBUTEROL SULFATE
     Indication: CHRONIC OBSTRUCTIVE PULMONARY DISEASE
     Dosage: 1-2 PUFFS AS NEEDEDUNK
     Route: 065
     Dates: start: 2010

REACTIONS (14)
  - Vasoconstriction [Unknown]
  - Myocardial infarction [Recovered/Resolved]
  - Myocardial ischaemia [Unknown]
  - Cerebrovascular disorder [Recovered/Resolved]
  - Hyperlipidaemia [Not Recovered/Not Resolved]
  - Cerebral vasoconstriction [Unknown]
  - Hypoacusis [Unknown]
  - Oropharyngeal pain [Unknown]
  - Cerebrovascular accident [Unknown]
  - Arrhythmia [Recovered/Resolved]
  - Pharyngitis [Unknown]
  - Memory impairment [Unknown]
  - Transient ischaemic attack [Recovered/Resolved]
  - Rheumatic heart disease [Recovered/Resolved]

NARRATIVE: CASE EVENT DATE: 2015
